FAERS Safety Report 8006156-6 (Version None)
Quarter: 2011Q4

REPORT INFORMATION
  Report Type: 
  Country: None (occurrence: None)
  Receive Date: 20111226
  Receipt Date: 20111221
  Transmission Date: 20120403
  Serious: Yes (Hospitalization)
  Sender: FDA-Public Use
  Company Number: US-BRISTOL-MYERS SQUIBB COMPANY-16224271

PATIENT
  Age: 77 Year
  Sex: Male

DRUGS (7)
  1. ASPIRIN [Concomitant]
  2. NIASPAN [Concomitant]
  3. PRAVACHOL [Suspect]
     Route: 048
     Dates: start: 20111027, end: 20111101
  4. LOSARTAN POTASSIUM [Concomitant]
  5. HYDROCHLOROTHIAZIDE [Suspect]
     Dosage: STOPPED
     Dates: start: 20111104, end: 20111101
  6. CLONIDINE [Concomitant]
  7. CATAPRES [Concomitant]

REACTIONS (1)
  - PULMONARY EMBOLISM [None]
